FAERS Safety Report 7872938-4 (Version None)
Quarter: 2011Q4

REPORT INFORMATION
  Report Type: 
  Country: None (occurrence: None)
  Receive Date: 20111030
  Receipt Date: 20110420
  Transmission Date: 20120403
  Serious: No
  Sender: FDA-Public Use
  Company Number: US-AMGEN-USASP2011020763

PATIENT
  Age: 45 Year
  Sex: Female

DRUGS (7)
  1. FISH OIL [Concomitant]
  2. ADVAIR DISKUS 100/50 [Concomitant]
  3. ALBUTEROL [Concomitant]
     Dosage: 900 UNK, UNK
  4. ENBREL [Suspect]
     Dosage: 50 MG, QWK
     Route: 058
  5. PHENAZOPYRIDINE HCL TAB [Concomitant]
     Dosage: 100 MG, UNK
  6. FIBER [Concomitant]
     Dosage: 0.52 G, UNK
  7. PROBIOTICA [Concomitant]

REACTIONS (6)
  - INJECTION SITE WARMTH [None]
  - INJECTION SITE INFLAMMATION [None]
  - OROPHARYNGEAL PAIN [None]
  - INJECTION SITE ERYTHEMA [None]
  - INJECTION SITE PRURITUS [None]
  - LYMPHADENOPATHY [None]
